FAERS Safety Report 15391152 (Version 4)
Quarter: 2018Q4

REPORT INFORMATION
  Report Type: Spontaneous
  Country: JP (occurrence: JP)
  Receive Date: 20180917
  Receipt Date: 20181115
  Transmission Date: 20190204
  Serious: Yes (Other)
  Sender: FDA-Public Use
  Company Number: JP-TEVA-2018-JP-005101J

PATIENT
  Age: 62 Year
  Sex: Female

DRUGS (1)
  1. ALENDRONATE [Suspect]
     Active Substance: ALENDRONATE SODIUM
     Indication: PRODUCT USED FOR UNKNOWN INDICATION
     Route: 048
     Dates: start: 201806

REACTIONS (2)
  - Angina pectoris [Unknown]
  - Urine odour abnormal [Not Recovered/Not Resolved]

NARRATIVE: CASE EVENT DATE: 201806
